FAERS Safety Report 12614830 (Version 1)
Quarter: 2016Q3

REPORT INFORMATION
  Report Type: Spontaneous
  Country: US (occurrence: US)
  Receive Date: 20160802
  Receipt Date: 20160802
  Transmission Date: 20161109
  Serious: No
  Sender: FDA-Public Use
  Company Number: US-BEH-2016071655

PATIENT
  Sex: Female
  Weight: 65.76 kg

DRUGS (31)
  1. PRILOSEC [Concomitant]
     Active Substance: OMEPRAZOLE MAGNESIUM
  2. DIALYVITE [Concomitant]
     Active Substance: ASCORBIC ACID\BIOTIN\CALCIUM PANTOTHENATE\COBALAMIN\FOLIC ACID\NIACINAMIDE\PYRIDOXINE HYDROCHLORIDE\RIBOFLAVIN\THIAMINE MONONITRATE
  3. ROBAXIN [Concomitant]
     Active Substance: METHOCARBAMOL
  4. B COMPLEX                          /00212701/ [Concomitant]
     Active Substance: NIACINAMIDE\PYRIDOXINE\RIBOFLAVIN\THIAMINE
  5. DIAZEPAM. [Concomitant]
     Active Substance: DIAZEPAM
  6. HIZENTRA [Suspect]
     Active Substance: HUMAN IMMUNOGLOBULIN G
     Indication: IMMUNODEFICIENCY COMMON VARIABLE
     Dosage: 13 G, QW
     Route: 058
     Dates: start: 20110106
  7. DEPLIN [Concomitant]
     Active Substance: LEVOMEFOLATE CALCIUM
  8. DOXYCYCLINE. [Concomitant]
     Active Substance: DOXYCYCLINE
  9. ASPIRIN. [Concomitant]
     Active Substance: ASPIRIN
  10. ACETAMINOPHEN. [Concomitant]
     Active Substance: ACETAMINOPHEN
  11. EPIPEN [Concomitant]
     Active Substance: EPINEPHRINE
  12. VITAMINS WITH MINERALS [Concomitant]
     Active Substance: MINERALS\VITAMINS
  13. TRICOR                             /00090101/ [Concomitant]
     Active Substance: ADENOSINE
  14. FENTANYL. [Concomitant]
     Active Substance: FENTANYL
  15. TOPROL XL [Concomitant]
     Active Substance: METOPROLOL SUCCINATE
  16. FLOMAX [Concomitant]
     Active Substance: TAMSULOSIN HYDROCHLORIDE
  17. GENTAL                             /00047102/ [Concomitant]
  18. AMOXICILLIN. [Concomitant]
     Active Substance: AMOXICILLIN
  19. LIDOCAINE/PRILOCAINE [Concomitant]
     Active Substance: LIDOCAINE\PRILOCAINE
  20. FLONASE [Concomitant]
     Active Substance: FLUTICASONE PROPIONATE
  21. SYMBYAX [Concomitant]
     Active Substance: FLUOXETINE HYDROCHLORIDE\OLANZAPINE
  22. ARICEPT [Concomitant]
     Active Substance: DONEPEZIL HYDROCHLORIDE
  23. TOPAMAX [Concomitant]
     Active Substance: TOPIRAMATE
  24. KLONOPIN [Concomitant]
     Active Substance: CLONAZEPAM
  25. ADDERALL [Concomitant]
     Active Substance: AMPHETAMINE ASPARTATE\AMPHETAMINE SULFATE\DEXTROAMPHETAMINE SACCHARATE\DEXTROAMPHETAMINE SULFATE
  26. VYTORIN [Concomitant]
     Active Substance: EZETIMIBE\SIMVASTATIN
  27. BUTALBITAL AND ACETAMINOPHEN [Concomitant]
     Active Substance: ACETAMINOPHEN\BUTALBITAL
  28. DIPHENHYDRAMINE. [Concomitant]
     Active Substance: DIPHENHYDRAMINE
  29. SYMBICORT [Concomitant]
     Active Substance: BUDESONIDE\FORMOTEROL FUMARATE DIHYDRATE
  30. SAVELLA [Concomitant]
     Active Substance: MILNACIPRAN HYDROCHLORIDE
  31. NAMENDA [Concomitant]
     Active Substance: MEMANTINE HYDROCHLORIDE

REACTIONS (1)
  - Gallbladder disorder [Unknown]
